FAERS Safety Report 19874725 (Version 4)
Quarter: 2021Q4

REPORT INFORMATION
  Report Type: Spontaneous
  Country: US (occurrence: US)
  Receive Date: 20210923
  Receipt Date: 20211019
  Transmission Date: 20220303
  Serious: Yes (Hospitalization, Other)
  Sender: FDA-Public Use
  Company Number: US-PFIZER INC-202101046337

PATIENT
  Age: 66 Year
  Sex: Female
  Weight: 63.5 kg

DRUGS (5)
  1. SUTENT [Suspect]
     Active Substance: SUNITINIB MALATE
     Indication: Gastric cancer
     Dosage: 37.5 MG, 1X/DAY (37.5MG, ONE CAPSULE BY MOUTH EVERY DAY WITH OR WITHOUT FOOD)
     Route: 048
     Dates: start: 20210720
  2. SUTENT [Suspect]
     Active Substance: SUNITINIB MALATE
     Dosage: 37.5 MG, 1X/DAY
     Dates: start: 202108
  3. SUTENT [Suspect]
     Active Substance: SUNITINIB MALATE
     Dosage: 37.5 MG, 1X/DAY (37.5MG CAPSULE ONCE A DAY BY MOUTH, WITH OR WITHOUT FOOD)
     Route: 048
     Dates: start: 2021
  4. PANADOL [Concomitant]
     Active Substance: ACETAMINOPHEN
     Indication: Nausea
     Dosage: UNK, 1X/DAY (40, ONCE A DAY)
  5. PANTOPRAZOLE [Concomitant]
     Active Substance: PANTOPRAZOLE
     Indication: Gastrointestinal haemorrhage
     Dosage: 40 MG, 1X/DAY
     Route: 048

REACTIONS (10)
  - Fatigue [Unknown]
  - Diarrhoea [Unknown]
  - Dyspnoea [Not Recovered/Not Resolved]
  - Asthenia [Unknown]
  - Decreased appetite [Unknown]
  - Pulmonary embolism [Unknown]
  - Product dose omission issue [Unknown]
  - Somnolence [Unknown]
  - Thirst [Unknown]
  - Dry skin [Unknown]

NARRATIVE: CASE EVENT DATE: 20210701
